FAERS Safety Report 24857350 (Version 1)
Quarter: 2025Q1

REPORT INFORMATION
  Report Type: Spontaneous
  Country: CN (occurrence: CN)
  Receive Date: 20250117
  Receipt Date: 20250117
  Transmission Date: 20250409
  Serious: Yes (Hospitalization, Other)
  Sender: PUMA
  Company Number: CN-PUMA BIOTECHNOLOGY, LTD.-2025-PUM-CN000045

PATIENT

DRUGS (2)
  1. NERLYNX [Suspect]
     Active Substance: NERATINIB
     Indication: Breast cancer
     Dosage: 150 MG, DAILY
     Route: 048
     Dates: start: 20240331, end: 20240406
  2. NERLYNX [Suspect]
     Active Substance: NERATINIB
     Dosage: 200 MG, DAILY
     Route: 048
     Dates: start: 20240407, end: 20240418

REACTIONS (4)
  - Drug-induced liver injury [Recovering/Resolving]
  - Diarrhoea [Recovering/Resolving]
  - Abdominal pain [Unknown]
  - Underdose [Unknown]

NARRATIVE: CASE EVENT DATE: 20240418
